FAERS Safety Report 5638784-7 (Version None)
Quarter: 2008Q1

REPORT INFORMATION
  Report Type: 
  Country: None (occurrence: None)
  Receive Date: 20080226
  Receipt Date: 20080226
  Transmission Date: 20080703
  Serious: Yes (Hospitalization)
  Sender: FDA-Public Use
  Company Number: A0711781A

PATIENT
  Age: 49 Year
  Sex: Female

DRUGS (2)
  1. ALLI [Suspect]
     Indication: WEIGHT LOSS DIET
     Route: 048
     Dates: start: 20080201, end: 20080201
  2. FEMARA [Concomitant]

REACTIONS (8)
  - BURNING SENSATION [None]
  - DEHYDRATION [None]
  - DIARRHOEA [None]
  - GASTROENTERITIS [None]
  - INTESTINAL OBSTRUCTION [None]
  - MUSCLE SPASMS [None]
  - PAIN [None]
  - VOMITING [None]
